FAERS Safety Report 15458896 (Version 1)
Quarter: 2018Q4

REPORT INFORMATION
  Report Type: Spontaneous
  Country: US (occurrence: US)
  Receive Date: 20181003
  Receipt Date: 20181003
  Transmission Date: 20190204
  Serious: Yes (Other)
  Sender: FDA-Public Use
  Company Number: US-MYLANLABS-2018M1070439

PATIENT
  Age: 23 Year
  Sex: Male

DRUGS (3)
  1. AMPHETAMINE [Concomitant]
     Active Substance: AMPHETAMINE
     Indication: ATTENTION DEFICIT/HYPERACTIVITY DISORDER
  2. DEXTROAMPHETAMINE                  /00016601/ [Concomitant]
     Active Substance: DEXTROAMPHETAMINE
     Indication: ATTENTION DEFICIT/HYPERACTIVITY DISORDER
     Route: 065
  3. BUPRENORPHINE. [Suspect]
     Active Substance: BUPRENORPHINE
     Indication: PRODUCT USED FOR UNKNOWN INDICATION
     Dosage: INJECTED MATERIAL WAS PREPARED BY DISSOLVING A TABLET OF BUPRENORPHINE IN WATER
     Route: 013

REACTIONS (3)
  - Product administration error [Recovering/Resolving]
  - Peripheral ischaemia [Recovering/Resolving]
  - Peripheral embolism [Recovering/Resolving]
